FAERS Safety Report 15782277 (Version 1)
Quarter: 2019Q1

REPORT INFORMATION
  Report Type: Spontaneous
  Country: AT (occurrence: AT)
  Receive Date: 20190102
  Receipt Date: 20190102
  Transmission Date: 20190417
  Serious: Yes (Disabling, Other)
  Sender: FDA-Public Use
  Company Number: AT-GILEAD-2018-0381868

PATIENT
  Age: 56 Year
  Sex: Female
  Weight: 56 kg

DRUGS (2)
  1. VEMLIDY [Suspect]
     Active Substance: TENOFOVIR ALAFENAMIDE FUMARATE
     Indication: CHRONIC HEPATITIS B
     Dosage: 25 MG
     Route: 048
     Dates: start: 201801
  2. ENBREL [Suspect]
     Active Substance: ETANERCEPT
     Indication: RHEUMATOID ARTHRITIS
     Dosage: 25 MG
     Route: 058
     Dates: start: 201801

REACTIONS (2)
  - Impaired healing [Not Recovered/Not Resolved]
  - Humerus fracture [Unknown]

NARRATIVE: CASE EVENT DATE: 201809
